FAERS Safety Report 5068798-X (Version None)
Quarter: 2006Q3

REPORT INFORMATION
  Report Type: 
  Country: None (occurrence: None)
  Receive Date: 20060802
  Receipt Date: 20060406
  Transmission Date: 20061208
  Serious: No
  Sender: FDA-Public Use
  Company Number: US-BRISTOL-MYERS SQUIBB COMPANY-13339304

PATIENT
  Age: 83 Year
  Sex: Female
  Weight: 59 kg

DRUGS (4)
  1. COUMADIN [Suspect]
     Indication: CEREBROVASCULAR ACCIDENT
     Dosage: DURATION: FOR OVER 5 YEARS
  2. NORVASC [Concomitant]
  3. LIPITOR [Concomitant]
  4. DETROL [Concomitant]

REACTIONS (2)
  - DYSARTHRIA [None]
  - GAIT DISTURBANCE [None]
